FAERS Safety Report 6100695-0 (Version None)
Quarter: 2009Q1

REPORT INFORMATION
  Report Type: 
  Country: None (occurrence: None)
  Receive Date: 20090303
  Receipt Date: 20090223
  Transmission Date: 20090719
  Serious: Yes (Hospitalization)
  Sender: FDA-Public Use
  Company Number: US-JNJFOC-20090206052

PATIENT
  Age: 71 Year
  Sex: Female
  Weight: 74.84 kg

DRUGS (11)
  1. IMODIUM A-D EZ CHEWS [Suspect]
     Dosage: ONE DOSE SINCE 19-JAN-2009
     Route: 048
  2. IMODIUM A-D EZ CHEWS [Suspect]
     Indication: DIARRHOEA
     Dosage: 12 TO 20 TABLETS DAILY (24-40MG/DAY), 3 TABLETS (6MG) AFTER EACH BOWEL MOVEMENT)
     Route: 048
  3. BENICAR [Suspect]
     Indication: HYPERTENSION
     Dosage: 20/12.5
  4. GABAPENTIN [Suspect]
     Indication: CONVULSION
  5. FLEXERIL [Concomitant]
     Indication: PAIN
     Dosage: IN AM
  6. ACIPHEX [Concomitant]
     Indication: GASTROOESOPHAGEAL REFLUX DISEASE
     Dosage: IN AM
  7. DARVOCET [Concomitant]
     Indication: PAIN
  8. EXTRA STRENGTH TYLENOL [Concomitant]
     Indication: PAIN
  9. DILANTIN [Concomitant]
     Indication: CONVULSION
     Dosage: IN AM
  10. BENADRYL [Concomitant]
     Indication: SINUS DISORDER
     Dosage: IN AM
  11. DONNAGEL [Concomitant]

REACTIONS (2)
  - INTENTIONAL OVERDOSE [None]
  - PANCREATITIS CHRONIC [None]
